FAERS Safety Report 9002289 (Version 5)
Quarter: 2013Q3

REPORT INFORMATION
  Report Type: Spontaneous
  Country: US (occurrence: US)
  Receive Date: 20130107
  Receipt Date: 20130715
  Transmission Date: 20140515
  Serious: Yes (Other)
  Sender: FDA-Public Use
  Company Number: US-PFIZER INC-2013002109

PATIENT
  Age: 63 Year
  Sex: Female
  Weight: 94.79 kg

DRUGS (18)
  1. LYRICA [Suspect]
     Indication: FIBROMYALGIA
     Dosage: 50 MG, 3X/DAY
     Route: 048
     Dates: start: 2006, end: 2012
  2. LYRICA [Suspect]
     Indication: PAIN
     Dosage: UNK
     Route: 048
  3. LYRICA [Suspect]
     Dosage: 100 MG, 3X/DAY (2 CAPSULES OF 50 MG EACH)
     Dates: start: 201306
  4. IBUPROFEN [Concomitant]
     Dosage: 400 MG, 3X/DAY
  5. LEVOTHYROXINE [Concomitant]
     Indication: AUTOIMMUNE THYROIDITIS
     Dosage: 100 UG, UNK
  6. LEVOTHYROXINE [Concomitant]
     Dosage: UNK
  7. METFORMIN [Concomitant]
     Indication: DIABETES MELLITUS
     Dosage: UNK, 2X/DAY
  8. PRAVASTATIN [Concomitant]
     Dosage: UNK, 1X/DAY
  9. PRAVASTATIN [Concomitant]
     Dosage: UNK
  10. FLEXERIL [Concomitant]
     Dosage: HALF A TABLET, UNK
  11. LOSARTAN [Concomitant]
     Dosage: UNK, 1X/DAY
  12. ESTRADIOL [Concomitant]
     Dosage: UNK, 1X/DAY
  13. ACETAMINOPHEN [Concomitant]
     Dosage: 500 MG, 2X/DAY
  14. OMEPRAZOLE [Concomitant]
     Dosage: UNK, 1X/DAY
  15. FLAXSEED OIL [Concomitant]
     Dosage: UNK
  16. VITAMIN B [Concomitant]
     Dosage: UNK
  17. VITAMIN C [Concomitant]
     Dosage: UNK
  18. VITAMIN D [Concomitant]
     Dosage: UNK

REACTIONS (6)
  - Multiple sclerosis [Unknown]
  - Spinal disorder [Unknown]
  - Nervous system disorder [Unknown]
  - Cognitive disorder [Unknown]
  - Nervous system disorder [Unknown]
  - Headache [Unknown]
